FAERS Safety Report 19599846 (Version 1)
Quarter: 2021Q3

REPORT INFORMATION
  Report Type: Spontaneous
  Country: US (occurrence: US)
  Receive Date: 20210723
  Receipt Date: 20210723
  Transmission Date: 20211014
  Serious: No
  Sender: FDA-Public Use
  Company Number: None

PATIENT
  Age: 47 Year
  Sex: Male

DRUGS (7)
  1. ARIPRIPRAZOLE [Concomitant]
     Active Substance: ARIPIPRAZOLE
  2. CLOZAPINE. [Concomitant]
     Active Substance: CLOZAPINE
  3. SOLGAR B COMPLEX [Concomitant]
  4. DULOXETINE HYDROCHLORIDE. [Suspect]
     Active Substance: DULOXETINE HYDROCHLORIDE
     Indication: ANXIETY
     Dosage: ?          QUANTITY:1 CAPSULE(S);?
     Route: 048
     Dates: start: 20210717, end: 20210723
  5. METOPROLOL 50 MG [Concomitant]
     Active Substance: METOPROLOL
  6. LAMOTIDINE [Concomitant]
  7. HYDROXYZINE HCL [Concomitant]
     Active Substance: HYDROXYZINE HYDROCHLORIDE

REACTIONS (6)
  - Delusion of grandeur [None]
  - Behaviour disorder [None]
  - Intentional product use issue [None]
  - Somnolence [None]
  - Overdose [None]
  - Mania [None]

NARRATIVE: CASE EVENT DATE: 20210723
